FAERS Safety Report 13442408 (Version 1)
Quarter: 2017Q2

REPORT INFORMATION
  Report Type: Spontaneous
  Country: US (occurrence: US)
  Receive Date: 20170413
  Receipt Date: 20170413
  Transmission Date: 20170830
  Serious: No
  Sender: FDA-Public Use
  Company Number: None

PATIENT
  Age: 89 Year
  Sex: Female
  Weight: 46.9 kg

DRUGS (2)
  1. MANNITOL. [Suspect]
     Active Substance: MANNITOL
     Route: 040
     Dates: start: 20170412
  2. DEXTROSE. [Concomitant]
     Active Substance: DEXTROSE

REACTIONS (1)
  - Product label confusion [None]

NARRATIVE: CASE EVENT DATE: 20170412
